FAERS Safety Report 24180761 (Version 2)
Quarter: 2024Q3

REPORT INFORMATION
  Report Type: Spontaneous
  Country: CA (occurrence: CA)
  Receive Date: 20240806
  Receipt Date: 20240812
  Transmission Date: 20241016
  Serious: Yes (Other)
  Sender: MYLAN
  Company Number: CA-MYLANLABS-2024M1072194

PATIENT
  Age: 15 Year
  Sex: Female

DRUGS (7)
  1. SYNTHROID [Suspect]
     Active Substance: LEVOTHYROXINE SODIUM
     Indication: Product used for unknown indication
     Dosage: 500 NANOGRAM
     Route: 065
  2. SOMATROPIN [Suspect]
     Active Substance: SOMATROPIN
     Indication: Growth hormone deficiency
     Dosage: 1 MILLIGRAM
     Route: 058
  3. SOMATROPIN [Suspect]
     Active Substance: SOMATROPIN
     Dosage: 1350 MICROGRAM
     Route: 058
  4. ESTRADIOL [Concomitant]
     Active Substance: ESTRADIOL
     Dosage: 1500 MICROGRAM, QD (1 EVERY 1 DAYS)
     Route: 065
  5. HUMATROPE [Concomitant]
     Active Substance: SOMATROPIN
     Dosage: UNK
     Route: 065
  6. PREDNISONE [Concomitant]
     Active Substance: PREDNISONE
     Dosage: 4 MILLIGRAM
     Route: 065
  7. PROGESTERONE [Concomitant]
     Active Substance: PROGESTERONE
     Dosage: 1 DOSAGE FORM
     Route: 065

REACTIONS (8)
  - Hyperthyroidism [Recovered/Resolved]
  - Insomnia [Recovered/Resolved]
  - Alopecia [Recovered/Resolved]
  - Decreased appetite [Recovered/Resolved]
  - Heart rate increased [Recovered/Resolved]
  - Malaise [Recovered/Resolved]
  - Nail bed disorder [Recovered/Resolved]
  - Product prescribing error [Recovered/Resolved]
